FAERS Safety Report 14601540 (Version 18)
Quarter: 2019Q4

REPORT INFORMATION
  Report Type: Report from Study
  Country: CA (occurrence: CA)
  Receive Date: 20180306
  Receipt Date: 20191114
  Transmission Date: 20200122
  Serious: Yes (Hospitalization, Disabling, Other)
  Sender: FDA-Public Use
  Company Number: CA-ROCHE-1537653

PATIENT
  Age: 74 Year
  Sex: Female

DRUGS (21)
  1. METHYLPREDNISOLONE. [Concomitant]
     Active Substance: METHYLPREDNISOLONE
     Route: 042
     Dates: start: 20171004
  2. BISOPROLOL [Concomitant]
     Active Substance: BISOPROLOL
  3. RITUXAN [Suspect]
     Active Substance: RITUXIMAB
     Route: 042
     Dates: start: 20171004
  4. METHOTREXATE. [Concomitant]
     Active Substance: METHOTREXATE
  5. RITUXAN [Suspect]
     Active Substance: RITUXIMAB
     Indication: RHEUMATOID ARTHRITIS
     Dosage: DAY 1, 15
     Route: 042
     Dates: start: 20150211
  6. RITUXAN [Suspect]
     Active Substance: RITUXIMAB
     Route: 042
     Dates: start: 20180322
  7. LASIX [Concomitant]
     Active Substance: FUROSEMIDE
  8. VENLAFAXINE [Concomitant]
     Active Substance: VENLAFAXINE HYDROCHLORIDE
  9. BENADRYL [Concomitant]
     Active Substance: DIPHENHYDRAMINE HYDROCHLORIDE
     Indication: PREMEDICATION
     Route: 048
     Dates: start: 20150211
  10. DIPHENHYDRAMINE HCL [Concomitant]
     Active Substance: DIPHENHYDRAMINE HYDROCHLORIDE
     Indication: PREMEDICATION
     Route: 048
     Dates: start: 20150211
  11. ACETAMINOPHEN. [Concomitant]
     Active Substance: ACETAMINOPHEN
     Route: 048
     Dates: start: 20171004
  12. DIPHENHYDRAMINE HCL [Concomitant]
     Active Substance: DIPHENHYDRAMINE HYDROCHLORIDE
     Route: 048
     Dates: start: 20171004
  13. RITUXAN [Suspect]
     Active Substance: RITUXIMAB
     Dosage: DAY 1, 15
     Route: 042
     Dates: start: 20160229
  14. ACETAMINOPHEN. [Concomitant]
     Active Substance: ACETAMINOPHEN
     Indication: PREMEDICATION
     Route: 048
     Dates: start: 20150211
  15. FOLIC ACID. [Concomitant]
     Active Substance: FOLIC ACID
  16. TYLENOL [Concomitant]
     Active Substance: ACETAMINOPHEN
     Route: 042
  17. SULFASALAZINE. [Concomitant]
     Active Substance: SULFASALAZINE
  18. FLUCONAZOLE. [Suspect]
     Active Substance: FLUCONAZOLE
     Indication: ORAL FUNGAL INFECTION
     Route: 065
  19. FLUCONAZOLE. [Suspect]
     Active Substance: FLUCONAZOLE
     Dosage: FOR 10 DAYS
     Route: 065
  20. METHYLPREDNISOLONE. [Concomitant]
     Active Substance: METHYLPREDNISOLONE
     Indication: PREMEDICATION
     Route: 042
     Dates: start: 20150211
  21. HYDROXYQUINOLINE [Concomitant]

REACTIONS (54)
  - Heart rate abnormal [Unknown]
  - Fall [Unknown]
  - Dyspnoea [Unknown]
  - Confusional state [Recovered/Resolved]
  - Oral disorder [Recovered/Resolved]
  - Tongue disorder [Not Recovered/Not Resolved]
  - Tongue coated [Not Recovered/Not Resolved]
  - Rash erythematous [Not Recovered/Not Resolved]
  - Skin disorder [Unknown]
  - Hypoaesthesia [Recovered/Resolved]
  - Dyspepsia [Not Recovered/Not Resolved]
  - Tongue oedema [Unknown]
  - Arrhythmia [Unknown]
  - Infusion related reaction [Not Recovered/Not Resolved]
  - Hypotension [Unknown]
  - Oropharyngeal pain [Recovered/Resolved]
  - Tongue blistering [Recovered/Resolved]
  - Constipation [Unknown]
  - Rash [Not Recovered/Not Resolved]
  - Dry skin [Not Recovered/Not Resolved]
  - Blood pressure systolic abnormal [Unknown]
  - Memory impairment [Not Recovered/Not Resolved]
  - Poor peripheral circulation [Unknown]
  - Deafness [Unknown]
  - Oxygen saturation decreased [Unknown]
  - Erythema [Recovered/Resolved]
  - Fatigue [Recovered/Resolved]
  - Blood pressure decreased [Unknown]
  - Arthralgia [Unknown]
  - Oral fungal infection [Not Recovered/Not Resolved]
  - Peripheral swelling [Recovered/Resolved]
  - Dyspepsia [Unknown]
  - Loss of consciousness [Not Recovered/Not Resolved]
  - Skin cancer [Not Recovered/Not Resolved]
  - Neck pain [Unknown]
  - Hypotension [Unknown]
  - Photosensitivity reaction [Unknown]
  - Erythema [Not Recovered/Not Resolved]
  - Hepatic pain [Unknown]
  - Faeces hard [Not Recovered/Not Resolved]
  - Dizziness [Recovering/Resolving]
  - Mouth ulceration [Not Recovered/Not Resolved]
  - Therapy non-responder [Unknown]
  - Nasopharyngitis [Recovered/Resolved]
  - Pyrexia [Recovered/Resolved]
  - Cardiac disorder [Unknown]
  - Blood pressure decreased [Recovered/Resolved]
  - Blood pressure diastolic abnormal [Unknown]
  - Throat irritation [Not Recovered/Not Resolved]
  - Fatigue [Unknown]
  - Musculoskeletal pain [Unknown]
  - Chest pain [Recovered/Resolved]
  - Cardiac disorder [Recovered/Resolved]
  - Heart rate decreased [Unknown]

NARRATIVE: CASE EVENT DATE: 20150211
